FAERS Safety Report 9415852 (Version 2)
Quarter: 2013Q3

REPORT INFORMATION
  Report Type: Report from Study
  Country: CA (occurrence: CA)
  Receive Date: 20130724
  Receipt Date: 20130725
  Transmission Date: 20140515
  Serious: Yes (Other)
  Sender: FDA-Public Use
  Company Number: CA-ROCHE-1252314

PATIENT
  Age: 59 Year
  Sex: Female
  Weight: 66.7 kg

DRUGS (25)
  1. RITUXAN [Suspect]
     Indication: GLOMERULONEPHRITIS
     Route: 042
     Dates: start: 20130523, end: 20130523
  2. RITUXAN [Suspect]
     Indication: OFF LABEL USE
  3. DIPHENHYDRAMINE HCL [Concomitant]
     Indication: PREMEDICATION
     Route: 048
     Dates: start: 20130523, end: 20130523
  4. ACETAMINOPHEN [Concomitant]
     Indication: PREMEDICATION
     Route: 048
     Dates: start: 20130523, end: 20130523
  5. METHYLPREDNISOLONE [Concomitant]
     Indication: PREMEDICATION
     Route: 042
     Dates: start: 20130523, end: 20130523
  6. PLAQUENIL [Concomitant]
  7. PREDNISONE [Concomitant]
  8. STATEX (CANADA) [Concomitant]
     Route: 065
  9. COUMADIN [Concomitant]
  10. TEMAZEPAM [Concomitant]
  11. PROGRAF [Concomitant]
  12. CYMBALTA [Concomitant]
  13. ATORVASTATIN [Concomitant]
  14. JANUMET [Concomitant]
  15. CALCITE D [Concomitant]
  16. EZETROL [Concomitant]
  17. EURO-K [Concomitant]
  18. DOMPERIDONE [Concomitant]
  19. ESOMEPRAZOLE [Concomitant]
  20. IRBESARTAN [Concomitant]
  21. ACLASTA [Concomitant]
  22. CYCLOBENZAPRINE [Concomitant]
  23. CYANOCOBALAMIN [Concomitant]
  24. EMLA [Concomitant]
     Route: 065
  25. NOVO-GESIC FORTE [Concomitant]

REACTIONS (5)
  - Dizziness [Recovered/Resolved]
  - Nausea [Recovered/Resolved]
  - Diarrhoea [Recovered/Resolved]
  - Asthenia [Recovered/Resolved]
  - Malaise [Unknown]
